FAERS Safety Report 8977670 (Version 1)
Quarter: 2012Q4

REPORT INFORMATION
  Report Type: 
  Country: US (occurrence: US)
  Receive Date: 20121220
  Receipt Date: 20121220
  Transmission Date: 20130627
  Serious: No
  Sender: FDA-Public Use
  Company Number: US-PFIZER INC-2012321615

PATIENT

DRUGS (3)
  1. EFFEXOR [Suspect]
     Dosage: 37.5 mg
  2. EFFEXOR [Suspect]
     Dosage: 75 mg
  3. EFFEXOR [Suspect]
     Dosage: 150 mg

REACTIONS (1)
  - Eye pain [Unknown]
